FAERS Safety Report 9057553 (Version 1)
Quarter: 2013Q1

REPORT INFORMATION
  Report Type: Spontaneous
  Country: US (occurrence: None)
  Receive Date: 20130204
  Receipt Date: 20130204
  Transmission Date: 20140127
  Serious: Yes (Disabling)
  Sender: FDA-Public Use
  Company Number: None

PATIENT
  Age: 54 Year
  Sex: Male
  Weight: 108.86 kg

DRUGS (4)
  1. OXALIPLATIN [Suspect]
     Indication: COLON CANCER METASTATIC
     Dosage: 6 CYCLES IV DRIP
     Dates: start: 20100921, end: 20101203
  2. OXALIPLATIN [Suspect]
     Indication: METASTASES TO LIVER
     Dosage: 6 CYCLES IV DRIP
     Dates: start: 20100921, end: 20101203
  3. FOLFOX-6 [Concomitant]
  4. AVASTIN [Concomitant]

REACTIONS (5)
  - Neuropathy peripheral [None]
  - Drug effect decreased [None]
  - Pain in extremity [None]
  - Exercise tolerance decreased [None]
  - Gait disturbance [None]
